FAERS Safety Report 15643592 (Version 4)
Quarter: 2019Q1

REPORT INFORMATION
  Report Type: Report from Study
  Country: ES (occurrence: ES)
  Receive Date: 20181121
  Receipt Date: 20190114
  Transmission Date: 20190417
  Serious: Yes (Disabling, Other)
  Sender: FDA-Public Use
  Company Number: ES-PFIZER INC-2018249734

PATIENT
  Age: 38 Year
  Sex: Female
  Weight: 58 kg

DRUGS (5)
  1. OMEPRAZOL [Concomitant]
     Active Substance: OMEPRAZOLE
     Indication: GASTRITIS PROPHYLAXIS
     Dosage: 20 MG, DAILY (QD)
     Route: 048
     Dates: start: 20170602
  2. LORLATINIB [Suspect]
     Active Substance: LORLATINIB
     Indication: LUNG CARCINOMA CELL TYPE UNSPECIFIED STAGE IV
     Dosage: 100 MG, DAILY
     Route: 048
     Dates: start: 20180405, end: 201804
  3. LORLATINIB [Suspect]
     Active Substance: LORLATINIB
     Dosage: 75 MG, DAILY
     Route: 048
     Dates: start: 201804, end: 20180703
  4. LORLATINIB [Suspect]
     Active Substance: LORLATINIB
     Dosage: 50 MG, DAILY
     Route: 048
     Dates: start: 20180824, end: 20180914
  5. DEXAMETHASONE. [Concomitant]
     Active Substance: DEXAMETHASONE
     Indication: BRAIN OEDEMA
     Dosage: 3 MG, DAILY (QD)
     Route: 048
     Dates: start: 20180303

REACTIONS (6)
  - Psychotic disorder [Recovered/Resolved]
  - Constipation [Not Recovered/Not Resolved]
  - Hypercholesterolaemia [Not Recovered/Not Resolved]
  - Hypertriglyceridaemia [Not Recovered/Not Resolved]
  - Weight increased [Not Recovered/Not Resolved]
  - Depression [Not Recovered/Not Resolved]

NARRATIVE: CASE EVENT DATE: 20180416
